FAERS Safety Report 4512151-1 (Version None)
Quarter: 2004Q4

REPORT INFORMATION
  Report Type: 
  Country: None (occurrence: None)
  Receive Date: 20041129
  Receipt Date: 20040727
  Transmission Date: 20050328
  Serious: No
  Sender: FDA-Public Use
  Company Number: US-GLAXOSMITHKLINE-A0519893A

PATIENT
  Age: 72 Year
  Sex: Female

DRUGS (4)
  1. LANOXIN [Suspect]
     Indication: ILL-DEFINED DISORDER
     Dosage: .25MG PER DAY
     Route: 048
  2. ATENOLOL [Concomitant]
  3. DIOVAN [Concomitant]
  4. COUMADIN [Concomitant]

REACTIONS (1)
  - WEIGHT DECREASED [None]
